FAERS Safety Report 10424885 (Version 1)
Quarter: 2014Q3

REPORT INFORMATION
  Report Type: Spontaneous
  Country: NO (occurrence: NO)
  Receive Date: 20140902
  Receipt Date: 20140902
  Transmission Date: 20150326
  Serious: Yes (Hospitalization)
  Sender: FDA-Public Use
  Company Number: NO-009507513-1408NOR016346

PATIENT
  Age: 52 Year
  Sex: Male

DRUGS (10)
  1. IMODIUM [Concomitant]
     Active Substance: LOPERAMIDE HYDROCHLORIDE
     Dosage: UNK UNK, BID
     Route: 048
  2. KEPPRA [Suspect]
     Active Substance: LEVETIRACETAM
     Dosage: 250 MG, BID
     Route: 048
     Dates: start: 2013
  3. HYDROXOCOBALAMIN [Concomitant]
     Active Substance: HYDROXOCOBALAMIN
     Dosage: EVERY 3. MONTH
     Route: 030
  4. PREDNISOLONE. [Suspect]
     Active Substance: PREDNISOLONE
     Route: 048
  5. METOPROLOL TARTRATE. [Concomitant]
     Active Substance: METOPROLOL TARTRATE
     Route: 048
  6. CEFUROXIME. [Concomitant]
     Active Substance: CEFUROXIME
     Dosage: STARTED AT THE END OF JUNE, SUSPECTED ABDOMINAL INFECTION
  7. CALCIGRAN FORTE [Concomitant]
     Dosage: 500/400, BID
     Route: 048
  8. PROGRAF [Suspect]
     Active Substance: TACROLIMUS\TACROLIMUS ANHYDROUS
     Indication: TRANSPLANT
     Dosage: 2 MG + 3 MG
     Route: 048
     Dates: start: 2001, end: 20140813
  9. FLAGYL [Concomitant]
     Active Substance: METRONIDAZOLE\METRONIDAZOLE HYDROCHLORIDE
     Indication: INFECTION
     Dosage: STARTED AT THE END OF JUNE, SUSPECTED ABDOMINAL INFECTION
     Dates: start: 201406, end: 20140813
  10. FOSAMAX [Suspect]
     Active Substance: ALENDRONATE SODIUM
     Route: 048

REACTIONS (2)
  - Metabolic acidosis [Recovering/Resolving]
  - Dyspnoea exertional [Recovering/Resolving]

NARRATIVE: CASE EVENT DATE: 201407
